FAERS Safety Report 17675739 (Version 1)
Quarter: 2020Q2

REPORT INFORMATION
  Report Type: Spontaneous
  Country: AU (occurrence: AU)
  Receive Date: 20200416
  Receipt Date: 20200416
  Transmission Date: 20200714
  Serious: Yes (Other)
  Sender: FDA-Public Use
  Company Number: AU-009507513-2004AUS002698

PATIENT
  Age: 64 Year
  Sex: Male

DRUGS (7)
  1. SINEMET [Suspect]
     Active Substance: CARBIDOPA\LEVODOPA
     Dosage: UNK, QD (INTERVAL: 1.0 DAY)
     Route: 048
  2. TRIHEXYPHENIDYL HYDROCHLORIDE. [Suspect]
     Active Substance: TRIHEXYPHENIDYL HYDROCHLORIDE
     Dosage: 2 MILLIGRAM, QD
     Route: 048
  3. CLOPINE [Suspect]
     Active Substance: CLOZAPINE
     Dosage: UNK
     Dates: start: 20190228, end: 20190309
  4. CLOPINE [Suspect]
     Active Substance: CLOZAPINE
     Dosage: 250 MILLIGRAM
     Route: 065
     Dates: start: 20151028, end: 20151117
  5. ROSUVASTATIN. [Suspect]
     Active Substance: ROSUVASTATIN
     Indication: BLOOD CHOLESTEROL INCREASED
     Dosage: 40 MILLIGRAM, INTERVAL: 1.0 DAY (HS) (NOCTE)
  6. ESCITALOPRAM [Suspect]
     Active Substance: ESCITALOPRAM OXALATE
     Dosage: 20 MILLIGRAM, QD (INTERVAL: 1 DAY) (DAILY)
     Route: 048
  7. OLANZAPINE. [Suspect]
     Active Substance: OLANZAPINE
     Dosage: DOSE: 22.5 MILLIGRAM, INTERVAL: 1 DAY (QD) (20 MG WAFER AND 2.5 MG TABLET NOCTE)
     Route: 048

REACTIONS (16)
  - Blood alkaline phosphatase increased [Recovered/Resolved]
  - Alanine aminotransferase increased [Recovered/Resolved]
  - Blood albumin decreased [Recovered/Resolved]
  - Eosinophil count increased [Recovered/Resolved]
  - Liver function test abnormal [Recovered/Resolved]
  - Blood creatine phosphokinase increased [Unknown]
  - Blood triglycerides increased [Recovered/Resolved]
  - Troponin increased [Unknown]
  - Blood cholesterol increased [Recovered/Resolved]
  - Hypersensitivity myocarditis [Unknown]
  - Aspartate aminotransferase increased [Recovered/Resolved]
  - Orthostatic hypotension [Unknown]
  - Gamma-glutamyltransferase increased [Recovered/Resolved]
  - Neutrophilia [Recovered/Resolved]
  - White blood cell count increased [Recovered/Resolved]
  - Blood creatine phosphokinase increased [Recovered/Resolved]

NARRATIVE: CASE EVENT DATE: 2015
